FAERS Safety Report 20430773 (Version 1)
Quarter: 2022Q1

REPORT INFORMATION
  Report Type: Report from Study
  Country: FR (occurrence: FR)
  Receive Date: 20220204
  Receipt Date: 20220204
  Transmission Date: 20220423
  Serious: Yes (Other)
  Sender: FDA-Public Use
  Company Number: FR-SERVIER-S20012390

PATIENT

DRUGS (7)
  1. PEGASPARGASE [Suspect]
     Active Substance: PEGASPARGASE
     Indication: Acute lymphocytic leukaemia
     Dosage: 1425 IU (QD ON D12, D26)
     Route: 042
     Dates: start: 20181023, end: 20191106
  2. TN UNSPECIFIED [Concomitant]
     Indication: Acute lymphocytic leukaemia
     Dosage: 0.9 MG, (D8, D15, D22, D29)
     Route: 042
     Dates: start: 20181019, end: 20181109
  3. TN UNSPECIFIED [Concomitant]
     Indication: Acute lymphocytic leukaemia
     Dosage: 18 MG, (D8, D15, D22, D29)
     Route: 042
     Dates: start: 20181023, end: 20181106
  4. TN UNSPECIFIED [Concomitant]
     Indication: Acute lymphocytic leukaemia
     Dosage: 12 MG (D13, D24)
     Route: 037
     Dates: start: 20181024, end: 20181106
  5. TN UNSPECIFIED [Concomitant]
     Indication: Acute lymphocytic leukaemia
     Dosage: 30 MG (D13, D24)
     Route: 037
     Dates: start: 20181024, end: 20181106
  6. TN UNSPECIFIED [Concomitant]
     Indication: Acute lymphocytic leukaemia
     Dosage: 15 MG (D13, D24)
     Route: 037
     Dates: start: 20181024, end: 20181106
  7. TN UNSPECIFIED [Concomitant]
     Indication: Acute lymphocytic leukaemia
     Dosage: 15 MG, QD (D8 TO D28)
     Route: 048
     Dates: start: 20181019, end: 20181108

REACTIONS (2)
  - Hypofibrinogenaemia [Recovered/Resolved]
  - Cholestasis [Recovered/Resolved]

NARRATIVE: CASE EVENT DATE: 20181102
